FAERS Safety Report 9177266 (Version 2)
Quarter: 2013Q2

REPORT INFORMATION
  Report Type: Report from Study
  Country: US (occurrence: US)
  Receive Date: 20130321
  Receipt Date: 20130415
  Transmission Date: 20140414
  Serious: Yes (Hospitalization, Other)
  Sender: FDA-Public Use
  Company Number: US-ASTELLAS-2013US003033

PATIENT
  Age: 77 Year
  Sex: Male
  Weight: 72 kg

DRUGS (10)
  1. ERLOTINIB TABLET [Suspect]
     Indication: LUNG NEOPLASM MALIGNANT
     Dosage: 100 MG, UID/QD
     Route: 048
     Dates: start: 20130128, end: 20130306
  2. COSOPT [Concomitant]
     Indication: PRODUCT USED FOR UNKNOWN INDICATION
     Dosage: 2%-0.5%, 1 DROP EACH EYE BID
     Route: 047
     Dates: start: 20130128
  3. MULTIVITAMINS, PLAIN [Concomitant]
     Indication: PRODUCT USED FOR UNKNOWN INDICATION
     Dosage: 1 DF, UID/QD
     Route: 048
     Dates: start: 20130128
  4. XALATAN [Concomitant]
     Indication: PRODUCT USED FOR UNKNOWN INDICATION
     Dosage: 0.005 %, 1 DROP EACH EYE AT BEDTIME
     Route: 047
     Dates: start: 20130128
  5. VITAMIN C                          /00444401/ [Concomitant]
     Indication: PRODUCT USED FOR UNKNOWN INDICATION
     Dosage: 1000 MG, UID/QD
     Route: 048
     Dates: start: 20130128
  6. VITAMIN D2 [Concomitant]
     Indication: PRODUCT USED FOR UNKNOWN INDICATION
     Dosage: 50000 U, WEEKLY
     Route: 048
     Dates: start: 20130128
  7. LISINOPRIL [Concomitant]
     Indication: PRODUCT USED FOR UNKNOWN INDICATION
     Dosage: 10 MG, UID/QD
     Route: 048
     Dates: start: 20130128
  8. CALCIUM CITRATE [Concomitant]
     Indication: PRODUCT USED FOR UNKNOWN INDICATION
     Dosage: 200 MG, UID/QD
     Route: 048
     Dates: start: 20130128
  9. ADVAIR [Concomitant]
     Indication: PRODUCT USED FOR UNKNOWN INDICATION
     Dosage: 1 PUFF BID
     Route: 002
     Dates: start: 20130128
  10. COMBIVENT [Concomitant]
     Indication: PRODUCT USED FOR UNKNOWN INDICATION
     Dosage: 18UG-103UG, INHALE 2 PUFFS QID, PRN
     Route: 002
     Dates: start: 20130128

REACTIONS (6)
  - Incorrect dose administered [Unknown]
  - Atrial fibrillation [Unknown]
  - Malignant pleural effusion [Unknown]
  - Diarrhoea [Recovering/Resolving]
  - Rash macular [Unknown]
  - Malignant neoplasm progression [Not Recovered/Not Resolved]
